FAERS Safety Report 24661861 (Version 1)
Quarter: 2024Q4

REPORT INFORMATION
  Report Type: Spontaneous
  Country: US (occurrence: US)
  Receive Date: 20241125
  Receipt Date: 20241125
  Transmission Date: 20250115
  Serious: Yes (Hospitalization)
  Sender: SANOFI AVENTIS
  Company Number: US-SA-2024SA340901

PATIENT
  Age: 85 Year
  Sex: Female
  Weight: 50.45 kg

DRUGS (11)
  1. DUPIXENT [Suspect]
     Active Substance: DUPILUMAB
     Indication: Rash
     Dosage: 300 MG, QOW
     Route: 058
  2. MELOXICAM [Concomitant]
     Active Substance: MELOXICAM
     Dosage: UNK
  3. SIMVASTATIN [Concomitant]
     Active Substance: SIMVASTATIN
     Dosage: UNK
  4. LEVOTHYROXINE [Concomitant]
     Active Substance: LEVOTHYROXINE
     Dosage: UNK
  5. VENLAFAXINE HCL [Concomitant]
     Active Substance: VENLAFAXINE HYDROCHLORIDE
     Dosage: UNK
  6. TRAZODONE HCL [Concomitant]
     Active Substance: TRAZODONE HYDROCHLORIDE
     Dosage: UNK
  7. LOSARTAN [Concomitant]
     Active Substance: LOSARTAN
     Dosage: UNK
  8. GABAPENTIN [Concomitant]
     Active Substance: GABAPENTIN
     Dosage: UNK
  9. ELIQUIS [Concomitant]
     Active Substance: APIXABAN
     Dosage: UNK
  10. MYRBETRIQ [Concomitant]
     Active Substance: MIRABEGRON
     Dosage: UNK
  11. BUSPIRONE HCL [Concomitant]
     Active Substance: BUSPIRONE HYDROCHLORIDE
     Dosage: UNK

REACTIONS (2)
  - Hospitalisation [Unknown]
  - Product use in unapproved indication [Unknown]

NARRATIVE: CASE EVENT DATE: 20241011
